FAERS Safety Report 4848601-0 (Version None)
Quarter: 2005Q4

REPORT INFORMATION
  Report Type: 
  Country: None (occurrence: None)
  Receive Date: 20051115
  Receipt Date: 20050808
  Transmission Date: 20060501
  Serious: Yes (Hospitalization)
  Sender: FDA-Public Use
  Company Number: 405637

PATIENT
  Age: 63 Year
  Sex: Female

DRUGS (7)
  1. PEGASYS [Suspect]
     Indication: HEPATITIS C VIRUS
     Dosage: 180 MCG 1 PER WEEK
     Dates: start: 20050401
  2. COPEGUS [Suspect]
     Indication: HEPATITIS C VIRUS
     Dosage: 200 MG 5 PER DAY ORAL
     Route: 048
     Dates: start: 20050401, end: 20050520
  3. NAPROXEN [Concomitant]
  4. CENESTIN [Concomitant]
  5. CELEXA [Concomitant]
  6. LISINOPRIL [Concomitant]
  7. HCTZ (HYDROCHLORIOTHIAZIDE) [Concomitant]

REACTIONS (10)
  - CYSTITIS [None]
  - FATIGUE [None]
  - FLANK PAIN [None]
  - JAUNDICE [None]
  - KIDNEY INFECTION [None]
  - LIVER FUNCTION TEST ABNORMAL [None]
  - PAIN [None]
  - PYREXIA [None]
  - THERAPEUTIC PRODUCT INEFFECTIVE [None]
  - VOMITING [None]
